FAERS Safety Report 6367920-2 (Version None)
Quarter: 2009Q3

REPORT INFORMATION
  Report Type: 
  Country: None (occurrence: None)
  Receive Date: 20090922
  Receipt Date: 20080912
  Transmission Date: 20100115
  Serious: No
  Sender: FDA-Public Use
  Company Number: A0747472A

PATIENT
  Age: 57 Year
  Sex: Male

DRUGS (8)
  1. SEREVENT [Suspect]
     Indication: CHRONIC OBSTRUCTIVE PULMONARY DISEASE
     Dosage: 50MCG TWICE PER DAY
     Route: 055
     Dates: start: 20080912
  2. NEXIUM [Concomitant]
  3. NASONEX [Concomitant]
  4. GARLIC PILLS [Concomitant]
  5. CENTRUM SILVER [Concomitant]
  6. FISH OIL [Concomitant]
  7. FIBERCHOICE UNSPECIFIED [Concomitant]
  8. VITAMIN [Concomitant]

REACTIONS (1)
  - TONGUE DRY [None]
